FAERS Safety Report 8974469 (Version 2)
Quarter: 2013Q1

REPORT INFORMATION
  Report Type: Spontaneous
  Country: US (occurrence: US)
  Receive Date: 20121220
  Receipt Date: 20130115
  Transmission Date: 20140127
  Serious: No
  Sender: FDA-Public Use
  Company Number: US-009507513-1212USA005517

PATIENT
  Age: 19 Year
  Sex: Female
  Weight: 81.63 kg

DRUGS (1)
  1. NEXPLANON [Suspect]
     Indication: CONTRACEPTION
     Dosage: EVERY 3 YEARS
     Route: 059
     Dates: start: 20120708

REACTIONS (4)
  - Menorrhagia [Unknown]
  - Dizziness [Unknown]
  - Nausea [Unknown]
  - Medical device complication [Unknown]
